FAERS Safety Report 6344464-5 (Version None)
Quarter: 2009Q3

REPORT INFORMATION
  Report Type: 
  Country: None (occurrence: None)
  Receive Date: 20090903
  Receipt Date: 20090821
  Transmission Date: 20100115
  Serious: Yes (Hospitalization)
  Sender: FDA-Public Use
  Company Number: 231608K09USA

PATIENT
  Age: 51 Year
  Sex: Male

DRUGS (2)
  1. REBIF [Suspect]
     Indication: MULTIPLE SCLEROSIS
     Dates: start: 20070612, end: 20081228
  2. PAIN MEDICATIONS (ALL OTHER THERAPEUTIC PRODUCTS) [Concomitant]

REACTIONS (8)
  - DEHYDRATION [None]
  - FALL [None]
  - INFECTION [None]
  - ORAL CAVITY FISTULA [None]
  - PSEUDOMONAS INFECTION [None]
  - RENAL FAILURE [None]
  - SINUSITIS [None]
  - STAPHYLOCOCCAL INFECTION [None]
